FAERS Safety Report 7450968-4 (Version None)
Quarter: 2011Q2

REPORT INFORMATION
  Report Type: 
  Country: None (occurrence: None)
  Receive Date: 20110502
  Receipt Date: 20110422
  Transmission Date: 20111010
  Serious: Yes (Other)
  Sender: FDA-Public Use
  Company Number: FR-NOVOPROD-327113

PATIENT
  Age: 71 Year
  Sex: Female
  Weight: 90 kg

DRUGS (9)
  1. DIAMICRON [Concomitant]
  2. CRESTOR [Concomitant]
  3. CO OLMETEC [Concomitant]
  4. VICTOZA [Suspect]
     Dosage: 1.2 MG, QD
     Route: 065
  5. VICTOZA [Suspect]
     Indication: PRODUCT USED FOR UNKNOWN INDICATION
     Dosage: 0.6 MG, QD
     Route: 065
     Dates: start: 20110208
  6. VICTOZA [Suspect]
     Dosage: 1.8 MG, QD
     Route: 065
     Dates: start: 20110412, end: 20110419
  7. LANTUS [Concomitant]
     Dosage: 20 IU, UNK
  8. LEVOTHYROX [Concomitant]
  9. AMLODIPINE BESYLATE [Concomitant]

REACTIONS (2)
  - PANCREATITIS ACUTE [None]
  - DYSGEUSIA [None]
